FAERS Safety Report 17846707 (Version 3)
Quarter: 2022Q3

REPORT INFORMATION
  Report Type: Report from Study
  Country: US (occurrence: US)
  Receive Date: 20200601
  Receipt Date: 20220714
  Transmission Date: 20221027
  Serious: Yes (Other)
  Sender: FDA-Public Use
  Company Number: US-SA-2020SA136370

PATIENT
  Age: 51 Year
  Sex: Female

DRUGS (7)
  1. DUPILUMAB [Suspect]
     Active Substance: DUPILUMAB
     Indication: Dermatitis atopic
     Route: 058
  2. DUPILUMAB [Suspect]
     Active Substance: DUPILUMAB
     Indication: Asthma
  3. DUPILUMAB [Suspect]
     Active Substance: DUPILUMAB
     Indication: Dermatitis atopic
     Dosage: 600 MG, 1X
     Route: 058
     Dates: start: 20190922, end: 20190922
  4. DUPILUMAB [Suspect]
     Active Substance: DUPILUMAB
     Indication: Asthma
     Dosage: 300 MG, QOW
     Route: 058
     Dates: start: 2019, end: 202109
  5. DUPILUMAB [Suspect]
     Active Substance: DUPILUMAB
     Dosage: 300 MG, QOW
     Route: 058
     Dates: start: 20210922
  6. COSENTYX [Concomitant]
     Active Substance: SECUKINUMAB
     Dosage: UNK
     Route: 065
  7. ARAVA [Concomitant]
     Active Substance: LEFLUNOMIDE

REACTIONS (18)
  - Post procedural sepsis [Unknown]
  - Pneumothorax [Not Recovered/Not Resolved]
  - Thrombosis [Not Recovered/Not Resolved]
  - Injection site pain [Unknown]
  - Fall [Unknown]
  - Meniscus injury [Unknown]
  - Back injury [Unknown]
  - Upper limb fracture [Unknown]
  - Joint injury [Unknown]
  - Allergy to immunoglobulin therapy [Unknown]
  - Cough [Unknown]
  - Blood magnesium decreased [Not Recovered/Not Resolved]
  - Infection [Unknown]
  - COVID-19 [Recovered/Resolved]
  - Central venous catheterisation [Recovered/Resolved]
  - Central venous catheter removal [Not Recovered/Not Resolved]
  - Drug effect less than expected [Unknown]
  - Spinal fusion surgery [Unknown]

NARRATIVE: CASE EVENT DATE: 20200101
